FAERS Safety Report 15699172 (Version 7)
Quarter: 2020Q2

REPORT INFORMATION
  Report Type: Spontaneous
  Country: US (occurrence: US)
  Receive Date: 20181207
  Receipt Date: 20200429
  Transmission Date: 20200713
  Serious: Yes (Other)
  Sender: FDA-Public Use
  Company Number: US-PFIZER INC-2018504627

PATIENT
  Age: 4 Decade
  Sex: Female
  Weight: 90.72 kg

DRUGS (2)
  1. AMLODIPINE BESILATE [Suspect]
     Active Substance: AMLODIPINE BESYLATE
     Dosage: 20 MG, DAILY
  2. AMLODIPINE BESILATE [Suspect]
     Active Substance: AMLODIPINE BESYLATE
     Indication: HYPERTENSION
     Dosage: 10 MG, DAILY

REACTIONS (7)
  - Drug ineffective [Unknown]
  - Heart rate increased [Unknown]
  - Intentional product use issue [Unknown]
  - Condition aggravated [Unknown]
  - Arrhythmia [Unknown]
  - Migraine [Unknown]
  - Prescribed overdose [Unknown]
